FAERS Safety Report 8229598-2 (Version None)
Quarter: 2012Q1

REPORT INFORMATION
  Report Type: 
  Country: None (occurrence: None)
  Receive Date: 20120322
  Receipt Date: 20120314
  Transmission Date: 20120608
  Serious: Yes (Life-Threatening, Hospitalization)
  Sender: FDA-Public Use
  Company Number: PHHY2010FR52270

PATIENT
  Sex: Male

DRUGS (16)
  1. NOPRON [Suspect]
     Dosage: UNK
     Dates: start: 20100628, end: 20100629
  2. TERCIAN [Suspect]
     Dosage: 12.5 MG, BID
     Dates: start: 20100501, end: 20100531
  3. CONCERTA [Suspect]
     Dosage: UNK
     Dates: start: 20100501
  4. ATARAX [Suspect]
     Indication: AGITATION
     Dosage: UNK
     Dates: start: 20100501, end: 20100604
  5. ATARAX [Suspect]
     Dosage: UNK
  6. ARTANE [Suspect]
     Indication: PARKINSONISM
     Dosage: 30 MG, QD
     Dates: start: 20100623, end: 20100629
  7. NEULEPTIL [Suspect]
     Dosage: UNK
     Dates: start: 20100501, end: 20100531
  8. VALIUM [Concomitant]
     Dosage: UNK
  9. RITALIN [Suspect]
     Indication: ANXIETY
     Dosage: 20 MG, QD
     Route: 048
     Dates: start: 20080101, end: 20100501
  10. ATARAX [Suspect]
     Dosage: 200 MG, QD
     Dates: start: 20100621, end: 20100629
  11. SUFENTANYL [Concomitant]
     Indication: SEDATIVE THERAPY
     Dosage: UNK
  12. RITALIN [Suspect]
     Dosage: 25 MG, QD
     Route: 048
     Dates: start: 20100621, end: 20100629
  13. RISPERDAL [Suspect]
     Dosage: 1 MG, BID
     Dates: start: 20080101, end: 20100501
  14. LEPTICUR [Suspect]
     Dosage: UNK
     Dates: start: 20100604, end: 20100621
  15. CLONAZEPAM [Suspect]
     Dosage: UNK
     Dates: start: 20100604, end: 20100621
  16. MIDAZOLAM HCL [Concomitant]
     Indication: SEDATIVE THERAPY
     Dosage: UNK

REACTIONS (23)
  - AGITATION [None]
  - CYTOLYTIC HEPATITIS [None]
  - HAEMODYNAMIC INSTABILITY [None]
  - TOXICITY TO VARIOUS AGENTS [None]
  - RESPIRATORY DISTRESS [None]
  - TACHYCARDIA [None]
  - HYPOTONIA [None]
  - HYPERTHERMIA [None]
  - ABNORMAL BEHAVIOUR [None]
  - DISSOCIATIVE FUGUE [None]
  - BLOOD CREATINE PHOSPHOKINASE INCREASED [None]
  - SHOCK [None]
  - RENAL FAILURE ACUTE [None]
  - IMPULSIVE BEHAVIOUR [None]
  - DYSKINESIA [None]
  - RHABDOMYOLYSIS [None]
  - LUNG DISORDER [None]
  - AGGRESSION [None]
  - GENERAL PHYSICAL HEALTH DETERIORATION [None]
  - ALTERED STATE OF CONSCIOUSNESS [None]
  - DEHYDRATION [None]
  - DRY SKIN [None]
  - CONVULSION [None]
